FAERS Safety Report 7988366-7 (Version None)
Quarter: 2011Q4

REPORT INFORMATION
  Report Type: 
  Country: None (occurrence: None)
  Receive Date: 20111216
  Receipt Date: 20111214
  Transmission Date: 20120403
  Serious: Yes (Hospitalization)
  Sender: FDA-Public Use
  Company Number: FR-ABBOTT-11P-056-0883183-00

PATIENT
  Sex: Male

DRUGS (5)
  1. ACETAMINOPHEN [Concomitant]
     Indication: PRODUCT USED FOR UNKNOWN INDICATION
     Route: 048
  2. CLARITHROMYCIN [Suspect]
     Indication: LUNG DISORDER
     Dosage: 50MG/ML, 1 DOSAGE FORM DAILY
     Route: 048
     Dates: start: 20111116, end: 20111119
  3. AMOXICILLIN [Suspect]
     Indication: LUNG DISORDER
     Dates: start: 20111109, end: 20111112
  4. AUGMENTIN [Suspect]
     Indication: LUNG DISORDER
     Route: 048
     Dates: start: 20111112, end: 20111116
  5. EXOMUC [Concomitant]
     Indication: PRODUCT USED FOR UNKNOWN INDICATION

REACTIONS (3)
  - ERYTHEMA [None]
  - ARTHRALGIA [None]
  - RASH [None]
